FAERS Safety Report 5834866-5 (Version None)
Quarter: 2008Q3

REPORT INFORMATION
  Report Type: 
  Country: None (occurrence: None)
  Receive Date: 20080805
  Receipt Date: 20080805
  Transmission Date: 20090109
  Serious: Yes (Life-Threatening)
  Sender: FDA-Public Use
  Company Number: None

PATIENT
  Age: 70 Year
  Sex: Female
  Weight: 57.4 kg

DRUGS (3)
  1. ERLOTINIB 100MG [Suspect]
     Indication: NON-SMALL CELL LUNG CANCER
     Dosage: 100MG PO QD
     Route: 048
  2. CLINDAMYCIN HCL [Concomitant]
  3. TRIAMCINOLONE [Concomitant]

REACTIONS (2)
  - OEDEMA PERIPHERAL [None]
  - PULMONARY EMBOLISM [None]
